FAERS Safety Report 6213819-1 (Version None)
Quarter: 2009Q2

REPORT INFORMATION
  Report Type: 
  Country: None (occurrence: None)
  Receive Date: 20090602
  Receipt Date: 20090527
  Transmission Date: 20091009
  Serious: Yes (Death)
  Sender: FDA-Public Use
  Company Number: 2009US001939

PATIENT
  Age: 70 Year
  Sex: Female

DRUGS (2)
  1. PROGRAF [Suspect]
     Indication: LIVER TRANSPLANT
     Dosage: 1 MG, BID,
     Dates: start: 19960817
  2. PREDNISONE TAB [Concomitant]

REACTIONS (1)
  - DEATH [None]
